FAERS Safety Report 21938090 (Version 5)
Quarter: 2025Q2

REPORT INFORMATION
  Report Type: Spontaneous
  Country: US (occurrence: US)
  Receive Date: 20230201
  Receipt Date: 20250528
  Transmission Date: 20250716
  Serious: Yes (Other)
  Sender: PFIZER
  Company Number: US-PFIZER INC-PV202300017708

PATIENT
  Age: 66 Year
  Sex: Female

DRUGS (3)
  1. XELJANZ XR [Suspect]
     Active Substance: TOFACITINIB CITRATE
     Indication: Rheumatoid arthritis
     Dosage: 11 MG, DAILY
     Route: 048
     Dates: start: 2022
  2. XELJANZ XR [Suspect]
     Active Substance: TOFACITINIB CITRATE
     Indication: Fibromyalgia
     Dosage: 11 MG, DAILY
     Route: 048
     Dates: start: 202502
  3. XELJANZ XR [Suspect]
     Active Substance: TOFACITINIB CITRATE
     Dosage: 11 MG, 1X/DAY
     Route: 048
     Dates: start: 202502, end: 202505

REACTIONS (13)
  - Skin cancer [Unknown]
  - Therapeutic product effect decreased [Unknown]
  - Product dose omission in error [Unknown]
  - Malaise [Unknown]
  - Scab [Unknown]
  - Cystitis interstitial [Recovering/Resolving]
  - Osteoarthritis [Recovering/Resolving]
  - Nasal congestion [Unknown]
  - Pruritus [Unknown]
  - Cough [Unknown]
  - Condition aggravated [Recovering/Resolving]
  - Abdominal discomfort [Unknown]
  - Vomiting [Unknown]

NARRATIVE: CASE EVENT DATE: 20230101
